FAERS Safety Report 8013927-9 (Version None)
Quarter: 2011Q4

REPORT INFORMATION
  Report Type: 
  Country: None (occurrence: None)
  Receive Date: 20111229
  Receipt Date: 20111215
  Transmission Date: 20120403
  Serious: Yes (Hospitalization)
  Sender: FDA-Public Use
  Company Number: US-UCBSA-047828

PATIENT
  Age: 53 Year
  Sex: Male
  Weight: 68.9 kg

DRUGS (5)
  1. MESALAMINE [Concomitant]
     Indication: CROHN'S DISEASE
     Dates: start: 20090518
  2. AZATHIOPRINE [Concomitant]
     Indication: CROHN'S DISEASE
     Dates: start: 20090519
  3. CIMZIA [Suspect]
     Indication: CROHN'S DISEASE
     Route: 058
     Dates: start: 20090622, end: 20100101
  4. PREDNISONE TAB [Concomitant]
     Indication: CROHN'S DISEASE
     Dates: start: 19890101
  5. AVELOX [Concomitant]

REACTIONS (2)
  - LOBAR PNEUMONIA [None]
  - PNEUMONIA [None]
